FAERS Safety Report 24056716 (Version 5)
Quarter: 2025Q3

REPORT INFORMATION
  Report Type: Spontaneous
  Country: US (occurrence: US)
  Receive Date: 20240705
  Receipt Date: 20250905
  Transmission Date: 20251021
  Serious: Yes (Other)
  Sender: AMGEN
  Company Number: US-AMGEN-USASP2024129291

PATIENT
  Sex: Female

DRUGS (16)
  1. OTEZLA [Suspect]
     Active Substance: APREMILAST
     Indication: Behcet^s syndrome
     Dosage: 30 MILLIGRAM, BID (2 TIMES EVERY DAY APPROXIMATELY 12 HOURS APART)
     Route: 048
     Dates: start: 20240702
  2. OTEZLA [Suspect]
     Active Substance: APREMILAST
     Indication: Axial spondyloarthritis
  3. ERRIN [Concomitant]
     Active Substance: NORETHINDRONE
     Route: 065
  4. Bd posiflush [Concomitant]
  5. COLCHICINE [Concomitant]
     Active Substance: COLCHICINE
  6. DEXAMETHASONE SODIUM PHOSPHATE [Concomitant]
     Active Substance: DEXAMETHASONE SODIUM PHOSPHATE
  7. DEXAMETHASONE SODIUM PHOSPHATE [Concomitant]
     Active Substance: DEXAMETHASONE SODIUM PHOSPHATE
  8. DIPHENHYDRAMINE [Concomitant]
     Active Substance: DIPHENHYDRAMINE
  9. GAMMAKED [Concomitant]
     Active Substance: HUMAN IMMUNOGLOBULIN G
  10. HUMIRA [Concomitant]
     Active Substance: ADALIMUMAB
  11. JENCYCLA [Concomitant]
     Active Substance: NORETHINDRONE
  12. SIMLANDI [Concomitant]
     Active Substance: ADALIMUMAB-RYVK
  13. EUCRISA [Concomitant]
     Active Substance: CRISABOROLE
  14. GAMMAGARD [Concomitant]
     Active Substance: HUMAN IMMUNOGLOBULIN G
  15. LABETALOL [Concomitant]
     Active Substance: LABETALOL
  16. TRIAMCINOLONE ACETONIDE [Concomitant]
     Active Substance: TRIAMCINOLONE ACETONIDE

REACTIONS (3)
  - Behcet^s syndrome [Unknown]
  - Upper respiratory tract infection [Unknown]
  - Therapy non-responder [Unknown]
